FAERS Safety Report 8018265-6 (Version None)
Quarter: 2011Q4

REPORT INFORMATION
  Report Type: 
  Country: None (occurrence: None)
  Receive Date: 20111227
  Receipt Date: 20111212
  Transmission Date: 20120403
  Serious: Yes (Hospitalization)
  Sender: FDA-Public Use
  Company Number: UTC-013293

PATIENT
  Age: 60 Year
  Sex: Female
  Weight: 52.27 kg

DRUGS (4)
  1. REMODULIN [Suspect]
     Indication: PULMONARY HYPERTENSION
     Dosage: 24.48 UG/KG (0.017 UG/KG, I IN 1 MIN), SUBCUTANEOUS
     Route: 058
     Dates: start: 20061122
  2. REVATIO [Concomitant]
  3. DIURETICS (DIURETICS) [Concomitant]
  4. TRACLEER (BOSETAN) [Concomitant]

REACTIONS (3)
  - HEADACHE [None]
  - PAIN IN EXTREMITY [None]
  - FATIGUE [None]
